FAERS Safety Report 22242458 (Version 1)
Quarter: 2023Q2

REPORT INFORMATION
  Report Type: Spontaneous
  Country: NL (occurrence: NL)
  Receive Date: 20230422
  Receipt Date: 20230422
  Transmission Date: 20230721
  Serious: Yes (Hospitalization)
  Sender: FDA-Public Use
  Company Number: None

PATIENT
  Sex: Female
  Weight: 54 kg

DRUGS (1)
  1. PAROXETINE [Suspect]
     Active Substance: PAROXETINE
     Indication: Depression
     Dosage: 10 MILLIGRAM DAILY; 1 X PER DAY 1 PIECE, BRAND NAME NOT SPECIFIED
     Route: 065
     Dates: start: 20130701

REACTIONS (3)
  - Dry mouth [Unknown]
  - Hypervolaemia [Unknown]
  - Hyponatraemia [Unknown]
